FAERS Safety Report 9081302 (Version 1)
Quarter: 2013Q1

REPORT INFORMATION
  Report Type: Report from Study
  Country: US (occurrence: US)
  Receive Date: 20130130
  Receipt Date: 20130130
  Transmission Date: 20140127
  Serious: No
  Sender: FDA-Public Use
  Company Number: US-ABBOTT-12P-163-0973531-00

PATIENT
  Age: 62 Year
  Sex: Female

DRUGS (12)
  1. HUMIRA 40 MG/0.8 ML PEN [Suspect]
     Indication: CROHN^S DISEASE
     Dates: start: 201202
  2. ASACOL [Concomitant]
     Indication: COELIAC DISEASE
  3. FLAGYL [Concomitant]
     Indication: FISTULA
  4. CIPRO [Concomitant]
     Indication: FISTULA
  5. TRIAM/HCTZ [Concomitant]
     Indication: HYPERTENSION
     Dosage: 37.5/5.25MG DAILY
  6. SYNTHROID [Concomitant]
     Indication: HYPOTHYROIDISM
  7. OMEPRAZOLE [Concomitant]
     Indication: GASTROOESOPHAGEAL REFLUX DISEASE
  8. NYSTATIN [Concomitant]
     Indication: ECZEMA
  9. TACLONEX [Concomitant]
     Indication: ECZEMA
  10. LIDOCAINE [Concomitant]
     Indication: ECZEMA
  11. MULTIVITAMIN [Concomitant]
     Indication: PRODUCT USED FOR UNKNOWN INDICATION
  12. TRAMADOL HCL [Concomitant]
     Indication: PAIN

REACTIONS (1)
  - Injection site pain [Recovered/Resolved]
